FAERS Safety Report 17995110 (Version 1)
Quarter: 2020Q3

REPORT INFORMATION
  Report Type: Spontaneous
  Country: US (occurrence: US)
  Receive Date: 20200708
  Receipt Date: 20200708
  Transmission Date: 20201103
  Serious: No
  Sender: FDA-Public Use
  Company Number: US-009507513-2006USA007516

PATIENT
  Age: 37 Year
  Sex: Female

DRUGS (1)
  1. TEMODAR [Suspect]
     Active Substance: TEMOZOLOMIDE
     Indication: HEPATIC CANCER
     Dosage: UNK, ON DAYS 1?5 OF A 28?DAY CYCLE
     Route: 048

REACTIONS (2)
  - Hypermutation [Unknown]
  - Off label use [Unknown]
